FAERS Safety Report 4975178-1 (Version None)
Quarter: 2006Q2

REPORT INFORMATION
  Report Type: 
  Country: None (occurrence: None)
  Receive Date: 20060418
  Receipt Date: 20060222
  Transmission Date: 20061013
  Serious: Yes (Other)
  Sender: FDA-Public Use
  Company Number: JP-GLAXOSMITHKLINE-B0413415A

PATIENT
  Age: 48 Year
  Sex: Male

DRUGS (9)
  1. EPIVIR [Suspect]
     Indication: HIV INFECTION
     Dosage: 300MG PER DAY
     Route: 048
     Dates: start: 19971119
  2. RETROVIR [Suspect]
     Indication: HIV INFECTION
     Route: 048
     Dates: start: 19971119
  3. ZERIT [Concomitant]
     Indication: HIV INFECTION
     Dosage: 30MG TWICE PER DAY
     Route: 048
     Dates: start: 19980819
  4. CRIXIVAN [Concomitant]
     Indication: HIV INFECTION
     Route: 048
     Dates: start: 19980930, end: 19981001
  5. VIRACEPT [Concomitant]
     Indication: HIV INFECTION
     Dosage: 2250MG PER DAY
     Route: 048
     Dates: start: 19981125, end: 20030327
  6. BAKTAR [Concomitant]
     Dosage: 1U PER DAY
     Route: 048
     Dates: start: 19981028, end: 20000125
  7. FUNGIZONE [Concomitant]
     Indication: ORAL CANDIDIASIS
     Route: 048
  8. URSO [Concomitant]
     Indication: HEPATITIS C
     Dosage: 200MG THREE TIMES PER DAY
     Route: 048
     Dates: start: 20040120
  9. VIRACEPT [Concomitant]
     Dosage: 2500MG PER DAY
     Route: 048
     Dates: start: 20030328

REACTIONS (2)
  - ANAEMIA [None]
  - WHITE BLOOD CELL COUNT DECREASED [None]
